FAERS Safety Report 21069907 (Version 5)
Quarter: 2022Q3

REPORT INFORMATION
  Report Type: Spontaneous
  Country: US (occurrence: US)
  Receive Date: 20220712
  Receipt Date: 20220822
  Transmission Date: 20221027
  Serious: No
  Sender: FDA-Public Use
  Company Number: US-BIOGEN-2022BI01138180

PATIENT
  Sex: Female

DRUGS (5)
  1. PLEGRIDY [Suspect]
     Active Substance: PEGINTERFERON BETA-1A
     Indication: Multiple sclerosis
     Route: 050
  2. ERYTHROMYCIN [Concomitant]
     Active Substance: ERYTHROMYCIN
     Route: 050
  3. PLEGISOL [Concomitant]
     Active Substance: CALCIUM CHLORIDE\MAGNESIUM CHLORIDE\POTASSIUM CHLORIDE\SODIUM CHLORIDE
     Route: 050
  4. ZOLOFT [Concomitant]
     Active Substance: SERTRALINE HYDROCHLORIDE
     Route: 050
  5. TOPIRAMATE [Concomitant]
     Active Substance: TOPIRAMATE
     Route: 050

REACTIONS (4)
  - Drug delivery system malfunction [Unknown]
  - Drug dose omission by device [Unknown]
  - Migraine [Unknown]
  - Multiple sclerosis [Unknown]
